FAERS Safety Report 7626925-1 (Version None)
Quarter: 2011Q3

REPORT INFORMATION
  Report Type: 
  Country: None (occurrence: None)
  Receive Date: 20110701
  Receipt Date: 20100805
  Transmission Date: 20111222
  Serious: Yes (Hospitalization)
  Sender: FDA-Public Use
  Company Number: 7004739

PATIENT
  Age: 56 Year
  Sex: Female
  Weight: 54 kg

DRUGS (11)
  1. XANAX [Concomitant]
  2. ADVAIR HFA [Concomitant]
  3. NUVIGIL [Concomitant]
  4. PROVENTIL [Concomitant]
  5. ASCORBIC ACID [Concomitant]
  6. RHINOCORT [Concomitant]
  7. VITAMIN A [Concomitant]
  8. SKELAXIN [Concomitant]
  9. REBIF [Suspect]
     Indication: MULTIPLE SCLEROSIS
     Dosage: 44 MCG, 3 IN 1 WK, SUBCUTANEOUS
     Route: 058
     Dates: start: 20060101
  10. AMITRIPTYLINE HCL [Concomitant]
  11. VITAMIN D [Concomitant]

REACTIONS (12)
  - OESOPHAGEAL DISORDER [None]
  - HEADACHE [None]
  - GASTRITIS [None]
  - CONSTIPATION [None]
  - PANCREATITIS [None]
  - WEIGHT DECREASED [None]
  - ORAL SURGERY [None]
  - ANXIETY [None]
  - ATROPHY [None]
  - PANCREATIC CYST [None]
  - BILE DUCT STENOSIS [None]
  - BLADDER DISORDER [None]
